APPROVED DRUG PRODUCT: ZIAGEN
Active Ingredient: ABACAVIR SULFATE
Strength: EQ 300MG BASE **Federal Register determination that product was not discontinued or withdrawn for safety or effectiveness reasons**
Dosage Form/Route: TABLET;ORAL
Application: N020977 | Product #001
Applicant: VIIV HEALTHCARE CO
Approved: Dec 17, 1998 | RLD: Yes | RS: No | Type: DISCN